FAERS Safety Report 13007069 (Version 1)
Quarter: 2016Q4

REPORT INFORMATION
  Report Type: Spontaneous
  Country: IE (occurrence: IE)
  Receive Date: 20161207
  Receipt Date: 20161207
  Transmission Date: 20170207
  Serious: Yes (Other)
  Sender: FDA-Public Use
  Company Number: IE-JNJFOC-20161204110

PATIENT
  Age: 59 Year
  Sex: Female

DRUGS (16)
  1. LYRICA [Concomitant]
     Active Substance: PREGABALIN
     Route: 050
  2. NUPRIN [Concomitant]
     Active Substance: IBUPROFEN
     Route: 050
  3. PREDNISOLONE. [Concomitant]
     Active Substance: PREDNISOLONE
     Route: 050
  4. ARIPIPRAZOLE. [Concomitant]
     Active Substance: ARIPIPRAZOLE
     Route: 050
  5. SIMVASTATIN. [Concomitant]
     Active Substance: SIMVASTATIN
     Route: 050
  6. BY-VERTIN [Concomitant]
     Route: 050
  7. CITALOPRAM [Concomitant]
     Active Substance: CITALOPRAM HYDROBROMIDE
     Route: 050
  8. DELTACORTRIL [Concomitant]
     Active Substance: PREDNISOLONE
     Route: 050
  9. PARACETAMOL [Concomitant]
     Active Substance: ACETAMINOPHEN
     Route: 050
  10. SEPTRIN [Concomitant]
     Active Substance: SULFAMETHOXAZOLE\TRIMETHOPRIM
     Route: 050
  11. LYRICA [Concomitant]
     Active Substance: PREGABALIN
     Route: 050
  12. STELARA [Suspect]
     Active Substance: USTEKINUMAB
     Indication: TEMPORAL ARTERITIS
     Route: 058
     Dates: start: 20150213
  13. CALCICHEW [Concomitant]
     Active Substance: CALCIUM CARBONATE
     Route: 050
  14. NEPRAMEL [Concomitant]
     Route: 050
  15. ZOPITAN [Concomitant]
     Route: 050
  16. ESOMEPRAZOLE [Concomitant]
     Active Substance: ESOMEPRAZOLE
     Route: 050

REACTIONS (4)
  - Eye swelling [Unknown]
  - Product use issue [Unknown]
  - Eye pain [Not Recovered/Not Resolved]
  - Off label use [Unknown]

NARRATIVE: CASE EVENT DATE: 20150213
